FAERS Safety Report 21506532 (Version 1)
Quarter: 2022Q4

REPORT INFORMATION
  Report Type: Spontaneous
  Country: US (occurrence: US)
  Receive Date: 20221026
  Receipt Date: 20221026
  Transmission Date: 20230113
  Serious: No
  Sender: FDA-Public Use
  Company Number: US-ORGANON-O2207USA000734

PATIENT
  Sex: Female

DRUGS (1)
  1. NEXPLANON [Suspect]
     Active Substance: ETONOGESTREL
     Dosage: 1 IMPLANT OF 68 MILLIGRAM EVERY 3 YEARS
     Route: 059

REACTIONS (3)
  - Device breakage [Recovered/Resolved]
  - Complication of device removal [Recovered/Resolved]
  - No adverse event [Unknown]
